FAERS Safety Report 10797105 (Version 1)
Quarter: 2015Q1

REPORT INFORMATION
  Report Type: Spontaneous
  Country: US (occurrence: US)
  Receive Date: 20150216
  Receipt Date: 20150216
  Transmission Date: 20150721
  Serious: No
  Sender: FDA-Public Use
  Company Number: US-TEVA-469050USA

PATIENT
  Age: 89 Year
  Sex: Female

DRUGS (1)
  1. ALENDRONIC ACID [Suspect]
     Active Substance: ALENDRONIC ACID
     Dosage: 5 MILLIGRAM DAILY;
     Route: 048
     Dates: start: 201312, end: 201312

REACTIONS (5)
  - Carpal tunnel syndrome [Unknown]
  - Pain in extremity [Unknown]
  - Myalgia [Unknown]
  - Arthritis [Unknown]
  - Neck pain [Unknown]
